FAERS Safety Report 10234581 (Version 1)
Quarter: 2014Q2

REPORT INFORMATION
  Report Type: Spontaneous
  Country: US (occurrence: US)
  Receive Date: 20140613
  Receipt Date: 20140613
  Transmission Date: 20141212
  Serious: Yes (Death)
  Sender: FDA-Public Use
  Company Number: US-ROCHE-1418091

PATIENT
  Age: 69 Year
  Sex: Male

DRUGS (3)
  1. PEGASYS [Suspect]
     Indication: HEPATITIS C
     Route: 058
  2. SOVALDI [Suspect]
     Indication: HEPATITIS C
     Route: 048
  3. RIBAPAK [Suspect]
     Indication: HEPATITIS C
     Route: 048

REACTIONS (1)
  - Death [Fatal]
